FAERS Safety Report 20362992 (Version 1)
Quarter: 2022Q1

REPORT INFORMATION
  Report Type: Spontaneous
  Country: FR (occurrence: FR)
  Receive Date: 20220121
  Receipt Date: 20220121
  Transmission Date: 20220423
  Serious: Yes (Death, Congenital Anomaly)
  Sender: FDA-Public Use
  Company Number: None

PATIENT
  Sex: Female

DRUGS (3)
  1. TRAMADOL HYDROCHLORIDE [Suspect]
     Active Substance: TRAMADOL HYDROCHLORIDE
     Indication: Product used for unknown indication
     Dosage: 1200 MILLIGRAM, 1/DAY?PARENT^S ROUTE OF ADMIN : UNKNOWN
     Route: 064
     Dates: start: 20210319, end: 20210915
  2. MISOPROSTOL [Suspect]
     Active Substance: MISOPROSTOL
     Indication: Product used for unknown indication
     Dosage: UNK?PARENT^S ROUTE OF ADMIN : UNKNOWN
     Route: 064
     Dates: start: 20210319, end: 20210319
  3. MIFEPRISTONE [Suspect]
     Active Substance: MIFEPRISTONE
     Indication: Product used for unknown indication
     Dosage: UNK?PARENT^S ROUTE OF ADMIN : UNKNOWN
     Route: 064
     Dates: start: 20210319, end: 20210319

REACTIONS (7)
  - Multiple congenital abnormalities [Fatal]
  - Congenital uterine anomaly [Fatal]
  - Cerebral ventricle dilatation [Fatal]
  - Congenital multiplex arthrogryposis [Fatal]
  - Limb reduction defect [Fatal]
  - Foetal exposure during pregnancy [Fatal]
  - Overdose [Fatal]

NARRATIVE: CASE EVENT DATE: 20210319
